FAERS Safety Report 8884040 (Version 2)
Quarter: 2012Q4

REPORT INFORMATION
  Report Type: 
  Country: US (occurrence: US)
  Receive Date: 20121102
  Receipt Date: 20121130
  Transmission Date: 20130627
  Serious: Yes (Death)
  Sender: FDA-Public Use
  Company Number: US-ELI_LILLY_AND_COMPANY-US201210007815

PATIENT
  Age: 70 Year
  Sex: Male
  Weight: 34.92 kg

DRUGS (12)
  1. FORTEO [Suspect]
     Dosage: 20 ug, qd
     Route: 058
     Dates: start: 201110
  2. COREG [Concomitant]
  3. OMEPRAZOLE [Concomitant]
  4. WARFARIN [Concomitant]
  5. DIGOXIN [Concomitant]
  6. GLUCOSAMINE [Concomitant]
  7. IRON [Concomitant]
  8. VITAMIN C [Concomitant]
  9. VITAMIN D [Concomitant]
  10. LISINOPRIL [Concomitant]
     Dosage: 5 mg, UNK
  11. KCL [Concomitant]
  12. LASIX                              /00032601/ [Concomitant]
     Dosage: 40 mg, prn

REACTIONS (3)
  - Cardiac failure [Fatal]
  - Cardiomyopathy [Fatal]
  - Arrhythmia [Fatal]
